FAERS Safety Report 8953284 (Version 2)
Quarter: 2013Q2

REPORT INFORMATION
  Report Type: Spontaneous
  Country: US (occurrence: US)
  Receive Date: 20121206
  Receipt Date: 20130410
  Transmission Date: 20140414
  Serious: Yes (Hospitalization)
  Sender: FDA-Public Use
  Company Number: US-BAYER-2012-126425

PATIENT
  Age: 39 Year
  Sex: Female
  Weight: 91.61 kg

DRUGS (4)
  1. YASMIN [Suspect]
  2. OCELLA [Suspect]
  3. KEPPRA [Concomitant]
     Indication: CONVULSION
  4. INDOMETHACIN [Concomitant]
     Dosage: 50 MG, UNK

REACTIONS (1)
  - Deep vein thrombosis [None]
